FAERS Safety Report 7141295-3 (Version None)
Quarter: 2010Q4

REPORT INFORMATION
  Report Type: 
  Country: None (occurrence: None)
  Receive Date: 20101122
  Receipt Date: 20101116
  Transmission Date: 20110411
  Serious: Yes (Other)
  Sender: FDA-Public Use
  Company Number: ALA_01081_2010

PATIENT
  Age: 64 Year
  Sex: Female

DRUGS (4)
  1. OLSALAZINE (OLSALAZINE) [Suspect]
     Indication: COLITIS ULCERATIVE
     Dosage: (0.5 G TID ORAL), (0.25 G TID ORAL)
     Route: 048
     Dates: start: 20091001
  2. OLSALAZINE (OSALAZINE) [Suspect]
  3. PINAVERIUM [Concomitant]
  4. BACILLUS LICHENIFORMIS [Concomitant]

REACTIONS (3)
  - MUCOSAL HAEMORRHAGE [None]
  - PURPURA [None]
  - THROMBOCYTOPENIA [None]
